FAERS Safety Report 15288508 (Version 1)
Quarter: 2018Q3

REPORT INFORMATION
  Report Type: Spontaneous
  Country: US (occurrence: US)
  Receive Date: 20180817
  Receipt Date: 20180817
  Transmission Date: 20181010
  Serious: Yes (Death, Other)
  Sender: FDA-Public Use
  Company Number: US-STRIDES ARCOLAB LIMITED-2018SP005626

PATIENT

DRUGS (4)
  1. TACROLIMUS. [Suspect]
     Active Substance: TACROLIMUS
     Indication: TRANSPLANT
     Dosage: UNK
     Route: 065
  2. PREDNISOLONE. [Suspect]
     Active Substance: PREDNISOLONE
     Indication: TRANSPLANT
     Dosage: UNKNOWN
     Route: 065
  3. METHYLPREDNISOLONE. [Suspect]
     Active Substance: METHYLPREDNISOLONE
     Indication: TRANSPLANT
     Dosage: UNKNOWN
     Route: 065
  4. METHYLPREDNISOLONE. [Suspect]
     Active Substance: METHYLPREDNISOLONE
     Dosage: UNK (TAPER)
     Route: 065

REACTIONS (14)
  - Escherichia infection [Unknown]
  - Abdominal abscess [Unknown]
  - Pyrexia [Unknown]
  - Arthritis infective [Unknown]
  - Abdominal pain [Unknown]
  - Encapsulating peritoneal sclerosis [Unknown]
  - Off label use [Unknown]
  - Vomiting [Unknown]
  - Arthralgia [Unknown]
  - Osteomyelitis fungal [Fatal]
  - Synovitis [Unknown]
  - Peritonitis [Unknown]
  - Arthritis reactive [Unknown]
  - Vena cava thrombosis [Unknown]
